FAERS Safety Report 6723622-1 (Version None)
Quarter: 2010Q2

REPORT INFORMATION
  Report Type: 
  Country: None (occurrence: None)
  Receive Date: 20100513
  Receipt Date: 20100430
  Transmission Date: 20101027
  Serious: Yes (Hospitalization)
  Sender: FDA-Public Use
  Company Number: US-WATSON-2010-06056

PATIENT
  Age: 24 Year
  Sex: Female

DRUGS (2)
  1. DIAZEPAM [Suspect]
     Indication: SUICIDE ATTEMPT
     Dosage: ^ABOUT 10 PILLS^
     Route: 048
  2. ANTIFREEZE [Suspect]
     Indication: SUICIDE ATTEMPT
     Dosage: UNK
     Route: 048

REACTIONS (5)
  - BRAIN OEDEMA [None]
  - CEREBRAL INFARCTION [None]
  - COMA [None]
  - HYPOXIC ENCEPHALOPATHY [None]
  - OVERDOSE [None]
